FAERS Safety Report 6456668-1 (Version None)
Quarter: 2009Q4

REPORT INFORMATION
  Report Type: 
  Country: None (occurrence: None)
  Receive Date: 20091125
  Receipt Date: 20090204
  Transmission Date: 20100525
  Serious: No
  Sender: FDA-Public Use
  Company Number: A0766883A

PATIENT
  Age: 75 Year
  Sex: Female

DRUGS (9)
  1. LANOXIN [Suspect]
     Indication: ATRIAL FIBRILLATION
     Dosage: .375MCG PER DAY
     Route: 048
     Dates: start: 20080301
  2. VERAPAMIL [Concomitant]
  3. ATROMID-S 500 [Concomitant]
  4. LIPITOR [Concomitant]
  5. METFORMIN [Concomitant]
  6. LISINOPRIL [Concomitant]
  7. FUROSEMIDE [Concomitant]
  8. CLONIDINE [Concomitant]
  9. ASPIRIN [Concomitant]

REACTIONS (2)
  - HEART RATE IRREGULAR [None]
  - HYPERTENSION [None]
